FAERS Safety Report 19632052 (Version 1)
Quarter: 2021Q3

REPORT INFORMATION
  Report Type: Spontaneous
  Country: US (occurrence: US)
  Receive Date: 20210728
  Receipt Date: 20210728
  Transmission Date: 20211014
  Serious: No
  Sender: FDA-Public Use
  Company Number: US-ROCHE-2623952

PATIENT
  Age: 54 Year
  Sex: Female

DRUGS (2)
  1. XELODA [Suspect]
     Active Substance: CAPECITABINE
     Indication: PRODUCT USED FOR UNKNOWN INDICATION
     Route: 048
     Dates: start: 20200606
  2. XELODA [Suspect]
     Active Substance: CAPECITABINE
     Route: 048
     Dates: start: 20200605

REACTIONS (11)
  - Blister [Unknown]
  - Hyperaesthesia [Unknown]
  - Pain [Unknown]
  - Musculoskeletal stiffness [Recovered/Resolved]
  - Thirst [Unknown]
  - Affect lability [Unknown]
  - Bone pain [Unknown]
  - Fatigue [Unknown]
  - Skin tightness [Unknown]
  - Peripheral swelling [Unknown]
  - Photosensitivity reaction [Unknown]

NARRATIVE: CASE EVENT DATE: 20200618
